FAERS Safety Report 15919531 (Version 1)
Quarter: 2019Q1

REPORT INFORMATION
  Report Type: Spontaneous
  Country: US (occurrence: US)
  Receive Date: 20190205
  Receipt Date: 20190205
  Transmission Date: 20190417
  Serious: Yes (Other)
  Sender: FDA-Public Use
  Company Number: US-ROCHE-2093923

PATIENT
  Age: 74 Year
  Sex: Male
  Weight: 69.01 kg

DRUGS (3)
  1. XOLAIR [Suspect]
     Active Substance: OMALIZUMAB
     Indication: RASH
  2. XOLAIR [Suspect]
     Active Substance: OMALIZUMAB
     Indication: PRURITUS
  3. XOLAIR [Suspect]
     Active Substance: OMALIZUMAB
     Indication: URTICARIA
     Dosage: 1 IN EACH ARM
     Route: 058
     Dates: start: 201801

REACTIONS (1)
  - Pancreatic neoplasm [Unknown]

NARRATIVE: CASE EVENT DATE: 20180302
